FAERS Safety Report 6316275-8 (Version None)
Quarter: 2009Q3

REPORT INFORMATION
  Report Type: 
  Country: None (occurrence: None)
  Receive Date: 20090819
  Receipt Date: 20090819
  Transmission Date: 20100115
  Serious: Yes (Hospitalization)
  Sender: FDA-Public Use
  Company Number: None

PATIENT
  Age: 67 Year
  Sex: Female

DRUGS (1)
  1. XOLAIR [Suspect]
     Indication: ASTHMA
     Dosage: 375 MG Q28 DAYS SQ (ONE TIME DOSE)
     Route: 058
     Dates: start: 20090811, end: 20090811

REACTIONS (4)
  - FEELING HOT [None]
  - FLUSHING [None]
  - PAIN IN JAW [None]
  - RESPIRATORY RATE INCREASED [None]
